FAERS Safety Report 9323606 (Version 1)
Quarter: 2013Q2

REPORT INFORMATION
  Report Type: Spontaneous
  Country: None (occurrence: IT)
  Receive Date: 20130603
  Receipt Date: 20130603
  Transmission Date: 20140414
  Serious: Yes (Life-Threatening, Hospitalization)
  Sender: FDA-Public Use
  Company Number: IT-TEVA-2010R0705106

PATIENT
  Age: 39 Year
  Sex: Female

DRUGS (12)
  1. LITHIUM [Suspect]
     Indication: BIPOLAR I DISORDER
     Dosage: 600 MILLIGRAM DAILY;
     Route: 048
  2. CARBIDOPA AND LEVODOPA [Suspect]
     Indication: NEUROLEPTIC MALIGNANT SYNDROME
     Dosage: TITRATED UP TO 250/25MG THREE TIMES A DAY
  3. CLOZAPINE [Suspect]
     Indication: BIPOLAR I DISORDER
     Dosage: 200 MILLIGRAM DAILY;
     Route: 065
  4. PIPAMPERONE [Suspect]
     Indication: BIPOLAR I DISORDER
     Dosage: 80 MILLIGRAM DAILY; NI
  5. HALOPERIDOL [Suspect]
     Indication: AGITATION
     Dosage: TITRATED UP TO 7MG DAILY
     Route: 030
  6. APOMORPHINE [Suspect]
     Indication: NEUROLEPTIC MALIGNANT SYNDROME
     Dosage: 24 MILLIGRAM DAILY;
     Route: 058
  7. VALPROIC ACID [Concomitant]
     Indication: BIPOLAR I DISORDER
     Dosage: 700 MILLIGRAM DAILY; NI
     Route: 065
  8. L-THYROXINE [Concomitant]
     Indication: AUTOIMMUNE THYROIDITIS
     Dosage: 75 MICROGRAM DAILY;
     Route: 065
  9. DIAZEPAM [Concomitant]
     Indication: AGITATION
     Dosage: TITRATED UP TO 10 MG DAILY
     Route: 042
  10. DIAZEPAM [Concomitant]
     Dosage: 20TO 30 DAILY
     Route: 042
  11. PROPOFOL [Concomitant]
     Indication: ANAESTHESIA
     Route: 042
  12. ATRACURIUM BESILATE [Concomitant]
     Indication: MUSCLE RELAXANT THERAPY
     Route: 042

REACTIONS (2)
  - Neuroleptic malignant syndrome [Recovering/Resolving]
  - Catatonia [Recovering/Resolving]
